FAERS Safety Report 6402003-4 (Version None)
Quarter: 2009Q4

REPORT INFORMATION
  Report Type: 
  Country: None (occurrence: None)
  Receive Date: 20091015
  Receipt Date: 20091006
  Transmission Date: 20100525
  Serious: Yes (Hospitalization)
  Sender: FDA-Public Use
  Company Number: IT-PFIZER INC-2007086494

PATIENT
  Age: 79 Year

DRUGS (6)
  1. SUNITINIB MALATE [Suspect]
     Indication: RENAL CANCER
     Dosage: 25 MG, 1X/DAY
     Route: 048
     Dates: start: 20060620, end: 20070902
  2. MEPRAL [Concomitant]
     Route: 048
     Dates: start: 20020615
  3. CREON [Concomitant]
     Route: 048
     Dates: start: 20060620
  4. LEVOPRAID [Concomitant]
     Route: 048
     Dates: start: 20060620
  5. ELITEN [Concomitant]
     Route: 048
     Dates: start: 20061024
  6. DELTACORTENE [Concomitant]
     Route: 048
     Dates: start: 20061219

REACTIONS (1)
  - URINARY TRACT INFECTION [None]
